FAERS Safety Report 8990353 (Version 1)
Quarter: 2012Q4

REPORT INFORMATION
  Report Type: 
  Country: JP (occurrence: JP)
  Receive Date: 20121228
  Receipt Date: 20121228
  Transmission Date: 20130627
  Serious: Yes (Other)
  Sender: FDA-Public Use
  Company Number: JP-BAYER-2012-100776

PATIENT
  Age: 39 Year
  Sex: Female
  Weight: 75 kg

DRUGS (1)
  1. BAYASPIRIN [Suspect]
     Indication: CARDIOVASCULAR EVENT PROPHYLAXIS
     Dosage: Daily dose 100 mg
     Route: 048
     Dates: start: 20120620, end: 201210

REACTIONS (3)
  - Exposure during pregnancy [None]
  - Caesarean section [None]
  - Off label use [None]
